FAERS Safety Report 8407568-9 (Version None)
Quarter: 2012Q2

REPORT INFORMATION
  Report Type: 
  Country: None (occurrence: None)
  Receive Date: 20120604
  Receipt Date: 20120529
  Transmission Date: 20120825
  Serious: Yes (Hospitalization)
  Sender: FDA-Public Use
  Company Number: US-GILEAD-2012-0055871

PATIENT
  Sex: Male

DRUGS (3)
  1. PLAVIX [Suspect]
  2. LETAIRIS [Suspect]
     Indication: PRODUCT USED FOR UNKNOWN INDICATION
     Dosage: 10 MG, UNK
     Route: 048
     Dates: start: 20120328
  3. ALENDRONATE SODIUM [Suspect]

REACTIONS (4)
  - LIFE SUPPORT [None]
  - RASH GENERALISED [None]
  - RASH ERYTHEMATOUS [None]
  - COMA [None]
